FAERS Safety Report 12417574 (Version 1)
Quarter: 2016Q2

REPORT INFORMATION
  Report Type: Spontaneous
  Country: US (occurrence: US)
  Receive Date: 20160530
  Receipt Date: 20160530
  Transmission Date: 20160815
  Serious: Yes (Other)
  Sender: FDA-Public Use
  Company Number: US-JNJFOC-20120610659

PATIENT
  Age: 0 Day
  Sex: Male
  Weight: 2.18 kg

DRUGS (12)
  1. PENTASA [Concomitant]
     Active Substance: MESALAMINE
     Indication: EXPOSURE DURING BREAST FEEDING
     Route: 064
     Dates: start: 2003, end: 20110919
  2. VITAMINS NOS [Concomitant]
     Active Substance: VITAMINS
     Indication: EXPOSURE DURING BREAST FEEDING
     Route: 064
     Dates: start: 20110228, end: 20110919
  3. CELEXA [Concomitant]
     Active Substance: CITALOPRAM HYDROBROMIDE
     Indication: EXPOSURE DURING BREAST FEEDING
     Route: 064
     Dates: start: 20110819, end: 20110919
  4. ALDOMET [Concomitant]
     Active Substance: METHYLDOPA
     Indication: FOETAL EXPOSURE DURING PREGNANCY
     Route: 064
  5. LABETALOL [Concomitant]
     Active Substance: LABETALOL\LABETALOL HYDROCHLORIDE
     Indication: EXPOSURE DURING BREAST FEEDING
     Route: 064
  6. PENTASA [Concomitant]
     Active Substance: MESALAMINE
     Indication: FOETAL EXPOSURE DURING PREGNANCY
     Route: 064
     Dates: start: 2003, end: 20110919
  7. REMICADE [Suspect]
     Active Substance: INFLIXIMAB
     Indication: FOETAL EXPOSURE DURING PREGNANCY
     Route: 064
     Dates: start: 2003
  8. LABETALOL [Concomitant]
     Active Substance: LABETALOL\LABETALOL HYDROCHLORIDE
     Indication: FOETAL EXPOSURE DURING PREGNANCY
     Route: 064
  9. REMICADE [Suspect]
     Active Substance: INFLIXIMAB
     Indication: EXPOSURE DURING BREAST FEEDING
     Route: 064
     Dates: start: 2003
  10. VITAMINS NOS [Concomitant]
     Active Substance: VITAMINS
     Indication: FOETAL EXPOSURE DURING PREGNANCY
     Route: 064
     Dates: start: 20110228, end: 20110919
  11. CELEXA [Concomitant]
     Active Substance: CITALOPRAM HYDROBROMIDE
     Indication: FOETAL EXPOSURE DURING PREGNANCY
     Route: 064
     Dates: start: 20110819, end: 20110919
  12. ALDOMET [Concomitant]
     Active Substance: METHYLDOPA
     Indication: EXPOSURE DURING BREAST FEEDING
     Route: 064

REACTIONS (2)
  - Breast feeding [Not Recovered/Not Resolved]
  - Premature baby [Not Recovered/Not Resolved]

NARRATIVE: CASE EVENT DATE: 20110919
